FAERS Safety Report 10459980 (Version 1)
Quarter: 2014Q3

REPORT INFORMATION
  Report Type: Spontaneous
  Country: US (occurrence: US)
  Receive Date: 20140917
  Receipt Date: 20140917
  Transmission Date: 20150326
  Serious: Yes (Other)
  Sender: FDA-Public Use
  Company Number: US-ROXANE LABORATORIES, INC.-2014-BI-42879GD

PATIENT
  Sex: Female

DRUGS (1)
  1. PREDNISONE. [Suspect]
     Active Substance: PREDNISONE
     Indication: IMMUNE THROMBOCYTOPENIC PURPURA
     Dosage: INITIALLY 40 MG DAILY FOR 3 MONTHS, THEN SLOW TAPER, THEN VARYING DOSES (30 - 70 MG WEEKLY), THEN GR
     Route: 048

REACTIONS (5)
  - Weight increased [Unknown]
  - Central obesity [Unknown]
  - Osteopenia [Unknown]
  - Cushingoid [Unknown]
  - Oedema peripheral [Unknown]
